FAERS Safety Report 21685729 (Version 1)
Quarter: 2022Q4

REPORT INFORMATION
  Report Type: Report from Study
  Country: US (occurrence: US)
  Receive Date: 20221206
  Receipt Date: 20221206
  Transmission Date: 20230113
  Serious: Yes (Other)
  Sender: FDA-Public Use
  Company Number: US-JNJFOC-20221166077

PATIENT
  Age: 6 Decade
  Sex: Female

DRUGS (4)
  1. RIVAROXABAN [Suspect]
     Active Substance: RIVAROXABAN
     Indication: Cerebrovascular accident prophylaxis
     Route: 048
  2. RIVAROXABAN [Suspect]
     Active Substance: RIVAROXABAN
     Indication: Atrial fibrillation
  3. RIVAROXABAN [Suspect]
     Active Substance: RIVAROXABAN
     Indication: Cardiac failure congestive
  4. RIVAROXABAN [Suspect]
     Active Substance: RIVAROXABAN
     Indication: Hypertension

REACTIONS (3)
  - Leukaemia [Unknown]
  - Bile duct cancer [Unknown]
  - Dementia [Unknown]

NARRATIVE: CASE EVENT DATE: 20030101
